FAERS Safety Report 8601012-4 (Version None)
Quarter: 2012Q3

REPORT INFORMATION
  Report Type: 
  Country: None (occurrence: None)
  Receive Date: 20120817
  Receipt Date: 20120808
  Transmission Date: 20120928
  Serious: Yes (Other)
  Sender: FDA-Public Use
  Company Number: JP-ASTELLAS-2012JP007551

PATIENT
  Age: 75 Year
  Sex: Female

DRUGS (3)
  1. EBRANTIL                           /00631801/ [Concomitant]
     Route: 048
  2. VESICARE [Suspect]
     Dosage: 2.5 MG, UID/QD
     Route: 048
  3. ANTIHYPERTENSIVES [Concomitant]
     Route: 048

REACTIONS (2)
  - MEMORY IMPAIRMENT [None]
  - BLOOD PRESSURE DECREASED [None]
